FAERS Safety Report 8598838-2 (Version None)
Quarter: 2012Q3

REPORT INFORMATION
  Report Type: 
  Country: None (occurrence: None)
  Receive Date: 20120816
  Receipt Date: 20120807
  Transmission Date: 20120928
  Serious: Yes (Life-Threatening, Hospitalization)
  Sender: FDA-Public Use
  Company Number: FR-GLAXOSMITHKLINE-B0821018A

PATIENT
  Sex: Male

DRUGS (4)
  1. ERBITUX [Suspect]
     Indication: TONSIL CANCER
     Dosage: 816MG SINGLE DOSE
     Route: 042
     Dates: start: 20120724, end: 20120724
  2. SOLU-MEDROL [Concomitant]
     Indication: PREMEDICATION
     Dosage: 80MG SINGLE DOSE
     Route: 042
     Dates: start: 20120724, end: 20120724
  3. ZOFRAN [Suspect]
     Indication: NAUSEA
     Dosage: 8MG SINGLE DOSE
     Route: 042
     Dates: start: 20120724, end: 20120724
  4. POLARAMINE [Concomitant]
     Indication: PREMEDICATION
     Dosage: 5MG SINGLE DOSE
     Route: 042
     Dates: start: 20120724, end: 20120724

REACTIONS (4)
  - HEADACHE [None]
  - LOSS OF CONSCIOUSNESS [None]
  - ANAPHYLACTIC SHOCK [None]
  - HYPERHIDROSIS [None]
